FAERS Safety Report 23607497 (Version 1)
Quarter: 2024Q1

REPORT INFORMATION
  Report Type: Spontaneous
  Country: FR (occurrence: FR)
  Receive Date: 20240307
  Receipt Date: 20240307
  Transmission Date: 20240410
  Serious: Yes (Hospitalization)
  Sender: FDA-Public Use
  Company Number: FR-AMERICAN REGENT INC-2024000793

PATIENT
  Age: 17 Year
  Sex: Male
  Weight: 53 kg

DRUGS (1)
  1. VENOFER [Suspect]
     Active Substance: IRON SUCROSE
     Indication: Iron deficiency anaemia
     Dosage: TOTAL (1 GRAM, 1 IN 1 TOTAL)
     Route: 042
     Dates: start: 20240118, end: 20240118

REACTIONS (4)
  - Blood iron increased [Recovering/Resolving]
  - Incorrect dose administered [Unknown]
  - Arthralgia [Recovered/Resolved]
  - Off label use [Unknown]

NARRATIVE: CASE EVENT DATE: 20240118
